FAERS Safety Report 6235254-2 (Version None)
Quarter: 2009Q2

REPORT INFORMATION
  Report Type: 
  Country: None (occurrence: None)
  Receive Date: 20090618
  Receipt Date: 20090608
  Transmission Date: 20091009
  Serious: Yes (Other)
  Sender: FDA-Public Use
  Company Number: CA-SANOFI-SYNTHELABO-A01200906343

PATIENT
  Age: 1 Day
  Weight: 0.953 kg

DRUGS (4)
  1. METHYLPREDNISOLONE [Concomitant]
     Indication: LUPUS NEPHRITIS
     Dosage: UNK
     Route: 064
  2. CYCLOPHOSPHAMIDE [Concomitant]
     Indication: LUPUS NEPHRITIS
     Dosage: UNK
     Route: 064
  3. HYDROXYCHLOROQUINE SULFATE [Suspect]
     Indication: LUPUS NEPHRITIS
     Dosage: UNK
     Route: 064
  4. PREDNISOLONE [Concomitant]
     Indication: RENAL IMPAIRMENT
     Dosage: 12.5 MG
     Route: 064

REACTIONS (3)
  - DRUG EXPOSURE DURING PREGNANCY [None]
  - POOR WEIGHT GAIN NEONATAL [None]
  - PREMATURE BABY [None]
